FAERS Safety Report 16712599 (Version 1)
Quarter: 2019Q3

REPORT INFORMATION
  Report Type: Spontaneous
  Country: NL (occurrence: NL)
  Receive Date: 20190816
  Receipt Date: 20190816
  Transmission Date: 20191004
  Serious: Yes (Other)
  Sender: FDA-Public Use
  Company Number: PHHY2019NL190697

PATIENT
  Age: 75 Year
  Sex: Male

DRUGS (1)
  1. ADPORT [Suspect]
     Active Substance: TACROLIMUS
     Indication: PRODUCT USED FOR UNKNOWN INDICATION
     Dosage: UNK
     Route: 065
     Dates: end: 20180814

REACTIONS (4)
  - Segmented hyalinising vasculitis [Unknown]
  - Tubulointerstitial nephritis [Unknown]
  - Chronic allograft nephropathy [Unknown]
  - Toxicity to various agents [Unknown]
